FAERS Safety Report 23728171 (Version 3)
Quarter: 2024Q2

REPORT INFORMATION
  Report Type: Spontaneous
  Country: US (occurrence: US)
  Receive Date: 20240410
  Receipt Date: 20240617
  Transmission Date: 20240716
  Serious: No
  Sender: FDA-Public Use
  Company Number: US-SA-SAC20240404001282

PATIENT
  Age: 25 Year
  Sex: Male

DRUGS (1)
  1. ALTUVIIIO [Suspect]
     Active Substance: EFANESOCTOCOG ALFA
     Indication: Prophylaxis
     Dosage: 4430 IU (+/- 10%), QW
     Route: 042

REACTIONS (12)
  - Peripheral swelling [Unknown]
  - Wound secretion [Unknown]
  - Abscess limb [Unknown]
  - Bloody discharge [Unknown]
  - Pain [Unknown]
  - Abscess limb [Unknown]
  - Purulent discharge [Unknown]
  - Bloody discharge [Unknown]
  - Pain [Unknown]
  - Pain in extremity [Unknown]
  - Pyrexia [Unknown]
  - Arthralgia [Unknown]

NARRATIVE: CASE EVENT DATE: 20240101
